FAERS Safety Report 4710801-8 (Version None)
Quarter: 2005Q3

REPORT INFORMATION
  Report Type: 
  Country: None (occurrence: None)
  Receive Date: 20050705
  Receipt Date: 20050621
  Transmission Date: 20060218
  Serious: Yes (Other)
  Sender: FDA-Public Use
  Company Number: HQWYE881723MAY05

PATIENT
  Age: 13 Month
  Sex: Male

DRUGS (2)
  1. BENEFIX [Suspect]
     Indication: FACTOR IX DEFICIENCY
     Dosage: SEE IMAGE
     Dates: start: 20050503, end: 20050511
  2. BENEFIX [Suspect]
     Indication: FACTOR IX DEFICIENCY
     Dosage: SEE IMAGE
     Dates: start: 20050512, end: 20050512

REACTIONS (10)
  - ACIDOSIS [None]
  - ANAPHYLACTIC REACTION [None]
  - CONVULSION [None]
  - HAEMOLYSIS [None]
  - HYPERSENSITIVITY [None]
  - HYPOTENSION [None]
  - OXYGEN SATURATION DECREASED [None]
  - PYREXIA [None]
  - TACHYCARDIA [None]
  - WRONG DRUG ADMINISTERED [None]
